FAERS Safety Report 26195045 (Version 1)
Quarter: 2025Q4

REPORT INFORMATION
  Report Type: Spontaneous
  Country: GB (occurrence: GB)
  Receive Date: 20251224
  Receipt Date: 20251224
  Transmission Date: 20260118
  Serious: Yes (Hospitalization, Other)
  Sender: MYLAN
  Company Number: GB-MYLANLABS-2025M1109898

PATIENT
  Age: 52 Year
  Sex: Male

DRUGS (9)
  1. CLOZARIL [Suspect]
     Active Substance: CLOZAPINE
     Indication: Schizophrenia
     Dosage: UNK, BID (200MG ONCE MORNING AND 250MG ONCE NIGHT)
     Dates: start: 20060508, end: 20110803
  2. CLOZARIL [Suspect]
     Active Substance: CLOZAPINE
     Dosage: 450 MILLIGRAM, PM (450MG NOCTE)
  3. CLOZARIL [Suspect]
     Active Substance: CLOZAPINE
     Dosage: UNK, BID (100 MG IN THE MORNING AND 450 MG AT NIGHT)
  4. CLOZARIL [Suspect]
     Active Substance: CLOZAPINE
     Dosage: 450 MILLIGRAM, PM (450MG ONCE NIGHT)
  5. CLOZARIL [Suspect]
     Active Substance: CLOZAPINE
     Dosage: 400 MILLIGRAM, PM (400MG ONCE NIGHT)
  6. AMISULPRIDE [Suspect]
     Active Substance: AMISULPRIDE
     Indication: Product used for unknown indication
     Dosage: 400 MILLIGRAM, BID (400MG BD (CLOZAPINE AUGMENTATION))
     Dates: start: 20140904
  7. AMISULPRIDE [Suspect]
     Active Substance: AMISULPRIDE
     Dosage: 300 MILLIGRAM, BID
     Dates: start: 20140918
  8. AMISULPRIDE [Suspect]
     Active Substance: AMISULPRIDE
     Dosage: UNK, BID (100MG ONCE MORNING AND 200MG ONCE NIGHT)
     Dates: start: 20150817
  9. AMISULPRIDE [Suspect]
     Active Substance: AMISULPRIDE
     Dosage: 400 MILLIGRAM, BID

REACTIONS (1)
  - Generalised tonic-clonic seizure [Unknown]

NARRATIVE: CASE EVENT DATE: 20150228
